FAERS Safety Report 9277196 (Version 3)
Quarter: 2013Q3

REPORT INFORMATION
  Report Type: Spontaneous
  Country: AT (occurrence: AT)
  Receive Date: 20130508
  Receipt Date: 20130711
  Transmission Date: 20140515
  Serious: Yes (Hospitalization, Other)
  Sender: FDA-Public Use
  Company Number: AT-ROCHE-1221530

PATIENT
  Age: 56 Year
  Sex: Male
  Weight: 63 kg

DRUGS (6)
  1. XELODA [Suspect]
     Indication: COLON CANCER
     Route: 065
     Dates: start: 20130306, end: 20130429
  2. XELODA [Suspect]
     Dosage: RESTARTED AND DISCONTINUED
     Route: 065
  3. PASPERTIN [Concomitant]
     Indication: NAUSEA
     Route: 065
     Dates: start: 20130304
  4. ZOFRAN ZYDIS [Concomitant]
     Indication: NAUSEA
     Route: 065
     Dates: start: 20130304
  5. KEPPRA [Concomitant]
     Route: 065
     Dates: end: 20130513
  6. KEPPRA [Concomitant]
     Route: 065
     Dates: start: 20130514

REACTIONS (2)
  - Cognitive disorder [Recovered/Resolved with Sequelae]
  - Leukoencephalopathy [Unknown]
